FAERS Safety Report 21385963 (Version 1)
Quarter: 2022Q3

REPORT INFORMATION
  Report Type: Report from Study
  Country: CA (occurrence: None)
  Receive Date: 20220928
  Receipt Date: 20220928
  Transmission Date: 20221027
  Serious: Yes (Other)
  Sender: FDA-Public Use
  Company Number: CA-AMGEN-CANSL2022164367

PATIENT
  Age: 12 Year
  Sex: Female
  Weight: 51 kg

DRUGS (7)
  1. METHOTREXATE [Suspect]
     Active Substance: METHOTREXATE
     Indication: Product used for unknown indication
     Dosage: UNK
     Route: 065
     Dates: start: 2016, end: 201802
  2. METHOTREXATE [Suspect]
     Active Substance: METHOTREXATE
     Dosage: UNK
     Route: 065
     Dates: start: 2018, end: 201808
  3. ENBREL [Suspect]
     Active Substance: ETANERCEPT
     Indication: Juvenile idiopathic arthritis
     Route: 065
     Dates: start: 20160306
  4. ENBREL [Suspect]
     Active Substance: ETANERCEPT
     Route: 058
     Dates: start: 201908, end: 2019
  5. ENBREL [Suspect]
     Active Substance: ETANERCEPT
     Route: 058
     Dates: start: 201910
  6. ENBREL [Suspect]
     Active Substance: ETANERCEPT
     Route: 058
  7. NON-STEROIDAL ANTI-INFLAMMATORY DRUGS [Concomitant]

REACTIONS (3)
  - Reversible airways obstruction [Unknown]
  - Cough [Recovered/Resolved]
  - Asthma exercise induced [Unknown]

NARRATIVE: CASE EVENT DATE: 20180101
